FAERS Safety Report 7902030-1 (Version None)
Quarter: 2011Q4

REPORT INFORMATION
  Report Type: 
  Country: None (occurrence: None)
  Receive Date: 20111108
  Receipt Date: 20111028
  Transmission Date: 20120403
  Serious: Yes (Hospitalization, Congenital Anomaly)
  Sender: FDA-Public Use
  Company Number: US-GLAXOSMITHKLINE-A0950682A

PATIENT
  Sex: Male
  Weight: 2.6 kg

DRUGS (4)
  1. PAXIL CR [Suspect]
     Indication: GENERALISED ANXIETY DISORDER
     Dosage: 37.5MG UNKNOWN
     Route: 064
  2. INDOMETHACIN [Concomitant]
     Dates: start: 20050415
  3. VITAMIN AND MINERAL PRENATAL SUPPLEMENT W/ FOLIC ACID CAP [Concomitant]
  4. BETAMETHASONE [Concomitant]
     Dates: start: 20050414

REACTIONS (6)
  - DIAPHRAGMATIC HERNIA [None]
  - CONGENITAL CHOROID PLEXUS CYST [None]
  - FOETAL EXPOSURE DURING PREGNANCY [None]
  - ANAL ATRESIA [None]
  - FALLOT'S TETRALOGY [None]
  - ATRIAL SEPTAL DEFECT [None]
